FAERS Safety Report 20799787 (Version 2)
Quarter: 2022Q4

REPORT INFORMATION
  Report Type: Spontaneous
  Country: JP (occurrence: JP)
  Receive Date: 20220509
  Receipt Date: 20221115
  Transmission Date: 20230113
  Serious: Yes (Life-Threatening, Hospitalization, Other)
  Sender: FDA-Public Use
  Company Number: JP-MSD-2205JPN000240J

PATIENT
  Age: 21 Year
  Sex: Male
  Weight: 54 kg

DRUGS (6)
  1. BRIDION [Suspect]
     Active Substance: SUGAMMADEX
     Indication: Neuromuscular blockade reversal
     Dosage: 200 MILLIGRAM
     Route: 042
     Dates: start: 20220421, end: 20220421
  2. ACETAMINOPHEN [Concomitant]
     Active Substance: ACETAMINOPHEN
     Indication: Analgesic therapy
     Dosage: 1000 MILLIGRAM
     Route: 041
     Dates: start: 20220421, end: 20220421
  3. ROCURONIUM BROMIDE [Concomitant]
     Active Substance: ROCURONIUM BROMIDE
     Indication: Induction of anaesthesia
     Dosage: UNK
     Route: 051
     Dates: start: 20220421, end: 20220421
  4. REMIFENTANIL HYDROCHLORIDE [Concomitant]
     Active Substance: REMIFENTANIL HYDROCHLORIDE
     Indication: Induction and maintenance of anaesthesia
     Dosage: UNK
     Route: 065
     Dates: start: 20220421, end: 20220421
  5. FENTANYL CITRATE [Concomitant]
     Active Substance: FENTANYL CITRATE
     Indication: Induction and maintenance of anaesthesia
     Dosage: UNK
     Route: 065
     Dates: start: 20220421, end: 20220421
  6. PROPOFOL [Concomitant]
     Active Substance: PROPOFOL
     Indication: Induction and maintenance of anaesthesia
     Dosage: UNK
     Route: 065
     Dates: start: 20220421, end: 20220421

REACTIONS (1)
  - Anaphylactic shock [Recovered/Resolved]

NARRATIVE: CASE EVENT DATE: 20220421
